FAERS Safety Report 8490160-8 (Version None)
Quarter: 2012Q3

REPORT INFORMATION
  Report Type: 
  Country: None (occurrence: None)
  Receive Date: 20120705
  Receipt Date: 20120625
  Transmission Date: 20120928
  Serious: Yes (Hospitalization, Other)
  Sender: FDA-Public Use
  Company Number: JP-ASTRAZENECA-2012SE43741

PATIENT
  Age: 33 Year
  Sex: Female

DRUGS (1)
  1. ROPIVACAINE HYDROCHLORIDE [Suspect]
     Indication: NERVE BLOCK
     Dosage: 2MG/ ML 0.375% 40ML
     Route: 065
     Dates: start: 20120625, end: 20120625

REACTIONS (2)
  - CONVULSION [None]
  - TOXICITY TO VARIOUS AGENTS [None]
